FAERS Safety Report 10191983 (Version 3)
Quarter: 2014Q2

REPORT INFORMATION
  Report Type: Spontaneous
  Country: US (occurrence: US)
  Receive Date: 20140523
  Receipt Date: 20140625
  Transmission Date: 20141212
  Serious: Yes (Hospitalization)
  Sender: FDA-Public Use
  Company Number: US-JNJFOC-20140117156

PATIENT
  Age: 80 Year
  Sex: Male
  Weight: 90.27 kg

DRUGS (10)
  1. XARELTO [Suspect]
     Indication: CEREBROVASCULAR ACCIDENT PROPHYLAXIS
     Route: 048
     Dates: start: 201304, end: 20131214
  2. XARELTO [Suspect]
     Indication: ATRIAL FIBRILLATION
     Route: 048
     Dates: start: 201304, end: 20131214
  3. ASPIRIN [Suspect]
     Indication: PRODUCT USED FOR UNKNOWN INDICATION
     Route: 048
  4. DIOVAN HCT [Concomitant]
     Dosage: 160/12.5 MG DIALY
     Route: 048
  5. LIPITOR [Concomitant]
     Route: 048
     Dates: start: 20130301
  6. ECASA [Concomitant]
     Route: 048
  7. BETAPACE [Concomitant]
     Route: 048
     Dates: start: 20121108
  8. OMEPRAZOLE [Concomitant]
     Route: 048
  9. OMEGA 3 FATTY ACID [Concomitant]
     Route: 048
  10. CIALIS [Concomitant]
     Route: 048

REACTIONS (7)
  - Gastrointestinal haemorrhage [Recovered/Resolved]
  - Melaena [Recovered/Resolved]
  - Anaemia [Recovering/Resolving]
  - Hypotension [Unknown]
  - Abdominal pain upper [Unknown]
  - International normalised ratio increased [Recovering/Resolving]
  - Dizziness [Unknown]
